FAERS Safety Report 4797352-X (Version None)
Quarter: 2005Q4

REPORT INFORMATION
  Report Type: 
  Country: None (occurrence: None)
  Receive Date: 20051013
  Receipt Date: 20051004
  Transmission Date: 20060501
  Serious: Yes (Hospitalization)
  Sender: FDA-Public Use
  Company Number: US-JNJFOC-20051001407

PATIENT
  Sex: Female
  Weight: 101.61 kg

DRUGS (13)
  1. DURAGESIC-100 [Suspect]
     Route: 062
     Dates: start: 20030601
  2. DARVOCET [Concomitant]
     Route: 048
  3. DARVOCET [Concomitant]
     Indication: PAIN
     Route: 048
  4. PERCOCET [Concomitant]
     Route: 048
  5. PERCOCET [Concomitant]
     Indication: PAIN
     Route: 048
  6. CYMBALTA [Concomitant]
     Indication: DEPRESSION
     Route: 048
  7. BACTRIM [Concomitant]
     Route: 048
  8. BACTRIM [Concomitant]
     Route: 048
  9. ALDACTONE [Concomitant]
     Route: 048
  10. VALIUM [Concomitant]
     Indication: ANXIETY
     Route: 048
  11. FOLIC ACID [Concomitant]
     Route: 048
  12. AZMACORT [Concomitant]
     Indication: ASTHMA
     Dosage: 2 PUFFS, 4 IN 24 HOURS
  13. METHADONE HCL [Concomitant]
     Indication: PAIN
     Route: 048

REACTIONS (4)
  - ABDOMINAL HERNIA [None]
  - FOOT FRACTURE [None]
  - GALLBLADDER DISORDER [None]
  - OSTEOARTHRITIS [None]
